FAERS Safety Report 18898396 (Version 1)
Quarter: 2021Q1

REPORT INFORMATION
  Report Type: Spontaneous
  Country: US (occurrence: US)
  Receive Date: 20210216
  Receipt Date: 20210216
  Transmission Date: 20210420
  Serious: Yes (Hospitalization)
  Sender: FDA-Public Use
  Company Number: None

PATIENT
  Age: 62 Year
  Sex: Male
  Weight: 103 kg

DRUGS (4)
  1. VINCRISTINE SULFATE 2 MG [Suspect]
     Active Substance: VINCRISTINE SULFATE
     Dates: end: 20210126
  2. MERCAPTOPURINE 1200 MG [Suspect]
     Active Substance: MERCAPTOPURINE
     Dates: end: 20210202
  3. PREDNISONE 700 MG [Suspect]
     Active Substance: PREDNISONE
     Dates: end: 20210130
  4. METHOTREXATE 12 MG [Suspect]
     Active Substance: METHOTREXATE
     Dates: end: 20210201

REACTIONS (2)
  - Pancreatitis [None]
  - Vomiting [None]

NARRATIVE: CASE EVENT DATE: 20210203
